FAERS Safety Report 13099228 (Version 1)
Quarter: 2017Q1

REPORT INFORMATION
  Report Type: Spontaneous
  Country: FR (occurrence: FR)
  Receive Date: 20170109
  Receipt Date: 20170109
  Transmission Date: 20170428
  Serious: Yes (Other)
  Sender: FDA-Public Use
  Company Number: FR-GUERBET LLC-1061828

PATIENT
  Sex: Female

DRUGS (2)
  1. OPTIRAY [Suspect]
     Active Substance: IOVERSOL
     Indication: SCAN WITH CONTRAST
     Route: 042
  2. DECAPEPTYL(TRIPTORELIN ACETATE) [Concomitant]

REACTIONS (1)
  - Angioedema [Recovered/Resolved]
